FAERS Safety Report 6278143-X (Version None)
Quarter: 2009Q3

REPORT INFORMATION
  Report Type: 
  Country: None (occurrence: None)
  Receive Date: 20090720
  Receipt Date: 20090708
  Transmission Date: 20100115
  Serious: Yes (Other)
  Sender: FDA-Public Use
  Company Number: CHNY2009CH02762

PATIENT
  Sex: Female
  Weight: 2.4 kg

DRUGS (11)
  1. CLEMASTINE FUMARATE [Suspect]
     Dosage: TRANSPLACENTAL
     Route: 064
     Dates: start: 20090113, end: 20090205
  2. CISPLATIN [Suspect]
     Dosage: TRANSPLACENTAL
     Route: 064
     Dates: start: 20090113, end: 20090205
  3. PACLITAXEL [Suspect]
     Dosage: TRANSPLACENTAL
     Route: 064
     Dates: start: 20090113, end: 20090205
  4. ZOFRAN [Suspect]
     Dosage: TRANSPLACENTAL
     Route: 064
     Dates: start: 20090113, end: 20090205
  5. ZANTAC [Suspect]
     Dosage: TRANSPLACENTAL
     Route: 064
     Dates: start: 20090113, end: 20090205
  6. DEXAMETHASONE TAB [Suspect]
     Dosage: TRANSPLACENTAL
     Route: 064
     Dates: start: 20090112, end: 20090205
  7. CELESTONE [Suspect]
     Dosage: TRANSPLACENTAL
     Route: 064
     Dates: start: 20090112, end: 20090113
  8. SOLU-MEDROL [Suspect]
     Dosage: TRANSPLACENTAL
     Route: 064
     Dates: start: 20090113, end: 20090205
  9. PRIMPERAN TAB [Suspect]
     Dosage: TRANSPLACENTAL
     Route: 064
  10. LASIX [Concomitant]
  11. LORAZEPAM [Concomitant]

REACTIONS (11)
  - BLOOD BILIRUBIN INCREASED [None]
  - BLOOD POTASSIUM INCREASED [None]
  - HAEMOGLOBIN INCREASED [None]
  - HYPOGLYCAEMIA NEONATAL [None]
  - HYPOTHERMIA NEONATAL [None]
  - JAUNDICE NEONATAL [None]
  - MATERNAL DRUGS AFFECTING FOETUS [None]
  - NEONATAL ASPIRATION [None]
  - NEONATAL RESPIRATORY DISTRESS SYNDROME [None]
  - PLATELET COUNT INCREASED [None]
  - PREMATURE BABY [None]
